FAERS Safety Report 22006762 (Version 2)
Quarter: 2023Q2

REPORT INFORMATION
  Report Type: Report from Study
  Country: US (occurrence: US)
  Receive Date: 20230217
  Receipt Date: 20230414
  Transmission Date: 20230722
  Serious: Yes (Other)
  Sender: FDA-Public Use
  Company Number: US-APELLIS PHARMACEUTICALS-APL-2023-002010

PATIENT
  Age: 44 Year
  Sex: Female

DRUGS (2)
  1. PEGCETACOPLAN [Suspect]
     Active Substance: PEGCETACOPLAN
     Indication: Product used for unknown indication
     Dosage: UNK
     Route: 065
  2. SOLIRIS [Concomitant]
     Active Substance: ECULIZUMAB
     Indication: Product used for unknown indication

REACTIONS (6)
  - Infusion site nodule [Unknown]
  - Infusion site reaction [Unknown]
  - Infusion site pruritus [Unknown]
  - Malaise [Unknown]
  - Headache [Unknown]
  - Drug ineffective [Unknown]
